FAERS Safety Report 7034750-8 (Version None)
Quarter: 2010Q4

REPORT INFORMATION
  Report Type: 
  Country: None (occurrence: None)
  Receive Date: 20101008
  Receipt Date: 20100929
  Transmission Date: 20110411
  Serious: Yes (Hospitalization, Other)
  Sender: FDA-Public Use
  Company Number: PHHY2010CN57217

PATIENT
  Age: 60 Year
  Sex: Male

DRUGS (1)
  1. VOLTAREN [Suspect]
     Indication: PAIN IN EXTREMITY
     Dosage: 5-6 TABLETS A DAY
     Route: 048
     Dates: start: 20100101, end: 20100609

REACTIONS (3)
  - ACUTE MYELOID LEUKAEMIA [None]
  - GASTRIC ULCER [None]
  - OVERDOSE [None]
